FAERS Safety Report 11788260 (Version 4)
Quarter: 2015Q4

REPORT INFORMATION
  Report Type: Spontaneous
  Country: TW (occurrence: TW)
  Receive Date: 20151201
  Receipt Date: 20151230
  Transmission Date: 20160305
  Serious: Yes (Hospitalization, Other)
  Sender: FDA-Public Use
  Company Number: TW-ALEXION PHARMACEUTICALS INC-A201504129

PATIENT
  Age: 22 Year
  Sex: Female
  Weight: 54 kg

DRUGS (3)
  1. SOLIRIS [Suspect]
     Active Substance: ECULIZUMAB
     Dosage: 900 MG, Q2W
     Route: 042
     Dates: start: 20151118
  2. SOLIRIS [Suspect]
     Active Substance: ECULIZUMAB
     Indication: PAROXYSMAL NOCTURNAL HAEMOGLOBINURIA
     Dosage: 600 MG, QW
     Route: 042
     Dates: start: 20141007, end: 20151019
  3. LINDYNETTE [Concomitant]
     Active Substance: ETHINYL ESTRADIOL\GESTODENE
     Indication: CONTRACEPTION
     Route: 065

REACTIONS (3)
  - Haemoglobin decreased [Recovered/Resolved]
  - Exposure during pregnancy [Recovered/Resolved]
  - Abortion [Unknown]

NARRATIVE: CASE EVENT DATE: 201510
